FAERS Safety Report 9542401 (Version 2)
Quarter: 2013Q3

REPORT INFORMATION
  Report Type: Spontaneous
  Country: US (occurrence: US)
  Receive Date: 20130923
  Receipt Date: 20130923
  Transmission Date: 20140515
  Serious: Yes (Other)
  Sender: FDA-Public Use
  Company Number: US-009507513-2011SP050941

PATIENT
  Sex: Female

DRUGS (6)
  1. IMPLANON [Suspect]
     Indication: CONTRACEPTION
     Dosage: UNK UNK, UNKNOWN
     Route: 059
     Dates: start: 200908, end: 20100823
  2. DARVOCET-N [Suspect]
     Indication: PRODUCT USED FOR UNKNOWN INDICATION
     Dosage: UNK UNK, UNKNOWN
     Route: 065
  3. MIRENA [Suspect]
     Indication: PRODUCT USED FOR UNKNOWN INDICATION
     Dosage: UNK UNK, UNKNOWN
     Route: 065
     Dates: start: 201008, end: 201011
  4. TRAMADOL HYDROCHLORIDE [Suspect]
     Indication: PRODUCT USED FOR UNKNOWN INDICATION
     Dosage: UNK UNK, UNKNOWN
     Route: 065
  5. PERCOCET [Concomitant]
     Indication: PRODUCT USED FOR UNKNOWN INDICATION
     Dosage: PERCOCET 5/325 1 TABLET
     Route: 065
  6. LOVENOX [Concomitant]
     Indication: PRODUCT USED FOR UNKNOWN INDICATION
     Dosage: UNK UNK, UNKNOWN
     Route: 065

REACTIONS (18)
  - Cervical dysplasia [Unknown]
  - Papilloma viral infection [Unknown]
  - Nodule [Unknown]
  - Body temperature [Unknown]
  - Nipple pain [Unknown]
  - Abdominal pain [Unknown]
  - Depression [Unknown]
  - Dysmenorrhoea [Unknown]
  - Drug ineffective [Unknown]
  - Mood swings [Unknown]
  - Back pain [Unknown]
  - Pelvic pain [Unknown]
  - Dysmenorrhoea [Unknown]
  - Vomiting [Unknown]
  - Acne [Unknown]
  - Breast pain [Unknown]
  - Constipation [Unknown]
  - Device breakage [Unknown]
